FAERS Safety Report 6458680-5 (Version None)
Quarter: 2009Q4

REPORT INFORMATION
  Report Type: 
  Country: None (occurrence: None)
  Receive Date: 20091120
  Receipt Date: 20091106
  Transmission Date: 20100525
  Serious: Yes (Other)
  Sender: FDA-Public Use
  Company Number: 1000010133

PATIENT
  Age: 82 Year
  Sex: Female

DRUGS (10)
  1. MEMANTINE HCL [Suspect]
     Indication: AMNESIA
     Dosage: 1 DOSAGE FORMS (1 DOSAGE FORMS, 1 IN 1 D)
     Dates: start: 20090901, end: 20090903
  2. DEPAKENE [Suspect]
     Indication: EPILEPSY
     Dosage: (3 IN 1 D)
     Dates: start: 20081210, end: 20090114
  3. DEPAKENE [Suspect]
     Indication: EPILEPSY
     Dosage: (2 IN 1 D), ORAL;  1000 MG (500 MG,2 IN 1 D),ORAL;   500 MG (500 MG,1 IN 1 D), ORAL
     Route: 048
     Dates: start: 20090115, end: 20090904
  4. DEPAKENE [Suspect]
     Indication: EPILEPSY
     Dosage: (2 IN 1 D), ORAL;  1000 MG (500 MG,2 IN 1 D),ORAL;   500 MG (500 MG,1 IN 1 D), ORAL
     Route: 048
     Dates: start: 20090905, end: 20090906
  5. DEPAKENE [Suspect]
     Indication: EPILEPSY
     Dosage: (2 IN 1 D), ORAL;  1000 MG (500 MG,2 IN 1 D),ORAL;   500 MG (500 MG,1 IN 1 D), ORAL
     Route: 048
     Dates: start: 20090907, end: 20090913
  6. DEPAKENE [Suspect]
     Indication: EPILEPSY
     Dosage: (2 IN 1 D), ORAL
     Route: 048
     Dates: start: 20090914
  7. NEURONTIN [Suspect]
     Dosage: 400 MG (400 MG, 1 IN 1 D), ORAL
     Route: 048
     Dates: start: 20090905, end: 20090905
  8. NEURONTIN [Suspect]
     Dosage: 800 MG (400 MG, 2 IN 1 D), ORAL
     Route: 048
     Dates: start: 20090906, end: 20090914
  9. PHENYTOIN SODIUM CAP [Concomitant]
  10. PLAVIX [Concomitant]

REACTIONS (7)
  - ALTERED STATE OF CONSCIOUSNESS [None]
  - ASTHENIA [None]
  - BALANCE DISORDER [None]
  - PARAESTHESIA [None]
  - SOMNOLENCE [None]
  - THINKING ABNORMAL [None]
  - URINE ABNORMALITY [None]
